FAERS Safety Report 25249832 (Version 1)
Quarter: 2025Q2

REPORT INFORMATION
  Report Type: Spontaneous
  Country: US (occurrence: None)
  Receive Date: 20250428
  Receipt Date: 20250428
  Transmission Date: 20250716
  Serious: Yes (Other)
  Sender: FDA-CTU
  Company Number: None

PATIENT
  Age: 54 Year
  Sex: Female
  Weight: 67.5 kg

DRUGS (9)
  1. SEMAGLUTIDE [Suspect]
     Active Substance: SEMAGLUTIDE
     Indication: Weight control
     Route: 058
     Dates: start: 20250419, end: 20250419
  2. ESTROGENS [Concomitant]
     Active Substance: ESTROGENS
  3. PROGESTERONE [Concomitant]
     Active Substance: PROGESTERONE
  4. MINOXIDIL [Concomitant]
     Active Substance: MINOXIDIL
  5. HYDROCHLOROTHIAZIDE [Concomitant]
     Active Substance: HYDROCHLOROTHIAZIDE
  6. LISINOPRIL [Concomitant]
     Active Substance: LISINOPRIL
  7. TRAZODONE [Concomitant]
     Active Substance: TRAZODONE HYDROCHLORIDE
  8. Neuriva [Concomitant]
  9. Nutrafol [Concomitant]

REACTIONS (9)
  - Weight decreased [None]
  - Nausea [None]
  - Diarrhoea [None]
  - Vomiting [None]
  - Constipation [None]
  - Eructation [None]
  - Abnormal dreams [None]
  - Fatigue [None]
  - Asthenia [None]

NARRATIVE: CASE EVENT DATE: 20250424
